FAERS Safety Report 10422888 (Version 1)
Quarter: 2014Q3

REPORT INFORMATION
  Report Type: Spontaneous
  Country: US (occurrence: None)
  Receive Date: 20140722
  Receipt Date: 20140722
  Transmission Date: 20150326
  Serious: Yes (Other)
  Sender: FDA-Public Use
  Company Number: 163-10004-14051605

PATIENT
  Age: 59 Year
  Sex: Male
  Weight: 63.5 kg

DRUGS (2)
  1. HUMIRA (ADLIMUMAB) [Concomitant]
  2. OTEZLA [Suspect]
     Active Substance: APREMILAST
     Indication: PSORIATIC ARTHROPATHY
     Route: 048
     Dates: start: 201405, end: 20140518

REACTIONS (5)
  - Suicidal ideation [None]
  - Weight decreased [None]
  - Abdominal pain upper [None]
  - Nausea [None]
  - Abnormal dreams [None]

NARRATIVE: CASE EVENT DATE: 201405
